FAERS Safety Report 6397534-X (Version None)
Quarter: 2009Q4

REPORT INFORMATION
  Report Type: 
  Country: None (occurrence: None)
  Receive Date: 20091012
  Receipt Date: 20091001
  Transmission Date: 20100525
  Serious: Yes (Hospitalization, Other)
  Sender: FDA-Public Use
  Company Number: ES-GILEAD-E2B_00000457

PATIENT
  Age: 34 Year
  Sex: Female

DRUGS (4)
  1. TRUVADA [Suspect]
     Indication: HIV INFECTION
     Route: 048
     Dates: start: 20090502, end: 20090702
  2. KALETRA [Concomitant]
     Indication: HIV INFECTION
     Route: 048
     Dates: start: 20090502
  3. NEURONTIN [Concomitant]
     Indication: EPILEPSY
     Dates: start: 19980101
  4. METHADONE HYDROCHLORIDE [Concomitant]
     Route: 048

REACTIONS (6)
  - DIZZINESS [None]
  - DRUG TOXICITY [None]
  - HYPOKALAEMIA [None]
  - INTERVERTEBRAL DISCITIS [None]
  - RENAL FAILURE ACUTE [None]
  - STAPHYLOCOCCAL INFECTION [None]
